FAERS Safety Report 15928548 (Version 3)
Quarter: 2019Q2

REPORT INFORMATION
  Report Type: Spontaneous
  Country: US (occurrence: US)
  Receive Date: 20190206
  Receipt Date: 20190416
  Transmission Date: 20190711
  Serious: Yes (Death, Other)
  Sender: FDA-Public Use
  Company Number: US-ASTRAZENECA-2018SF26296

PATIENT
  Age: 23643 Day
  Sex: Male
  Weight: 158.8 kg

DRUGS (27)
  1. ZOCOR [Concomitant]
     Active Substance: SIMVASTATIN
  2. NEXIUM [Suspect]
     Active Substance: ESOMEPRAZOLE MAGNESIUM
     Indication: GASTROOESOPHAGEAL REFLUX DISEASE
     Route: 048
     Dates: start: 20160128
  3. LORATADINE. [Concomitant]
     Active Substance: LORATADINE
  4. ANASTROZOLE. [Concomitant]
     Active Substance: ANASTROZOLE
  5. ENALAPRIL [Concomitant]
     Active Substance: ENALAPRIL
  6. IPRATROPIUM [Concomitant]
     Active Substance: IPRATROPIUM
  7. PREVACID [Suspect]
     Active Substance: LANSOPRAZOLE
     Indication: GASTROOESOPHAGEAL REFLUX DISEASE
     Route: 065
     Dates: start: 2006, end: 2009
  8. LEVEMIR [Concomitant]
     Active Substance: INSULIN DETEMIR
  9. LISINOPRIL. [Concomitant]
     Active Substance: LISINOPRIL
  10. BUMEX [Concomitant]
     Active Substance: BUMETANIDE
  11. PROTONIX [Suspect]
     Active Substance: PANTOPRAZOLE SODIUM
     Route: 065
     Dates: start: 20061216, end: 20150204
  12. CLOPIDOGREL [Concomitant]
     Active Substance: CLOPIDOGREL BISULFATE
  13. RANITIDINE. [Concomitant]
     Active Substance: RANITIDINE
  14. PREVACID [Suspect]
     Active Substance: LANSOPRAZOLE
     Indication: GASTROOESOPHAGEAL REFLUX DISEASE
     Route: 065
     Dates: start: 20061216, end: 20150204
  15. ATORVASTATIN [Concomitant]
     Active Substance: ATORVASTATIN
  16. CARVEDILOL. [Concomitant]
     Active Substance: CARVEDILOL
  17. SENSIPAR [Concomitant]
     Active Substance: CINACALCET HYDROCHLORIDE
  18. METOLAZONE. [Concomitant]
     Active Substance: METOLAZONE
  19. AZITHROMYCIN ANHYDROUS. [Concomitant]
     Active Substance: AZITHROMYCIN ANHYDROUS
  20. NEXIUM [Suspect]
     Active Substance: ESOMEPRAZOLE MAGNESIUM
     Indication: GASTROOESOPHAGEAL REFLUX DISEASE
     Route: 048
     Dates: start: 2006, end: 2014
  21. PREVACID [Suspect]
     Active Substance: LANSOPRAZOLE
     Indication: GASTROOESOPHAGEAL REFLUX DISEASE
     Route: 048
     Dates: start: 20070807
  22. ASPIRIN. [Concomitant]
     Active Substance: ASPIRIN
  23. NEXIUM [Suspect]
     Active Substance: ESOMEPRAZOLE MAGNESIUM
     Indication: GASTROOESOPHAGEAL REFLUX DISEASE
     Route: 048
     Dates: start: 20070217
  24. PLAVIX [Concomitant]
     Active Substance: CLOPIDOGREL BISULFATE
  25. NEXIUM [Suspect]
     Active Substance: ESOMEPRAZOLE MAGNESIUM
     Indication: GASTROOESOPHAGEAL REFLUX DISEASE
     Route: 048
     Dates: start: 20061216, end: 20150204
  26. LANTUS [Concomitant]
     Active Substance: INSULIN GLARGINE
  27. FAMOTIDINE. [Concomitant]
     Active Substance: FAMOTIDINE

REACTIONS (7)
  - Chronic kidney disease [Unknown]
  - Nephrolithiasis [Unknown]
  - Acute kidney injury [Unknown]
  - Renal failure [Unknown]
  - End stage renal disease [Unknown]
  - Death [Fatal]
  - Gastrooesophageal reflux disease [Unknown]

NARRATIVE: CASE EVENT DATE: 20160128
